FAERS Safety Report 7126159-3 (Version None)
Quarter: 2010Q4

REPORT INFORMATION
  Report Type: 
  Country: None (occurrence: None)
  Receive Date: 20101129
  Receipt Date: 20101122
  Transmission Date: 20110411
  Serious: Yes (Hospitalization)
  Sender: FDA-Public Use
  Company Number: US-SANOFI-AVENTIS-2010SA071349

PATIENT
  Age: 79 Year
  Sex: Male

DRUGS (3)
  1. MULTAQ [Suspect]
     Indication: ATRIAL FIBRILLATION
     Route: 048
     Dates: start: 20101001, end: 20101001
  2. DIGOXIN [Concomitant]
  3. CARDIZEM [Concomitant]

REACTIONS (2)
  - DYSPNOEA [None]
  - TREMOR [None]
